FAERS Safety Report 19704704 (Version 1)
Quarter: 2021Q3

REPORT INFORMATION
  Report Type: Spontaneous
  Country: US (occurrence: US)
  Receive Date: 20210816
  Receipt Date: 20210816
  Transmission Date: 20211014
  Serious: No
  Sender: FDA-Public Use
  Company Number: US-SA-2021SA269244

PATIENT
  Sex: Female

DRUGS (1)
  1. KEVZARA [Suspect]
     Active Substance: SARILUMAB
     Indication: ARTHRALGIA
     Dosage: 200 MG, QOW
     Route: 058
     Dates: start: 202107

REACTIONS (2)
  - Mental disorder [Unknown]
  - Malaise [Unknown]
